FAERS Safety Report 10239176 (Version 1)
Quarter: 2014Q2

REPORT INFORMATION
  Report Type: Spontaneous
  Country: US (occurrence: US)
  Receive Date: 20140616
  Receipt Date: 20140616
  Transmission Date: 20141212
  Serious: Yes (Hospitalization)
  Sender: FDA-Public Use
  Company Number: US-GLAXOSMITHKLINE-A1076458A

PATIENT
  Sex: Male

DRUGS (4)
  1. LOVAZA [Suspect]
     Indication: BLOOD CHOLESTEROL ABNORMAL
     Dosage: 2CAP TWICE PER DAY
     Route: 048
  2. BABY ASPIRIN [Suspect]
     Indication: PRODUCT USED FOR UNKNOWN INDICATION
     Route: 065
     Dates: end: 201312
  3. COUMADIN [Suspect]
     Indication: ATRIAL FIBRILLATION
     Route: 065
     Dates: end: 201312
  4. IRON [Concomitant]
     Route: 042
     Dates: start: 201302

REACTIONS (2)
  - Haemorrhage [Unknown]
  - Arteriovenous malformation [Unknown]
